FAERS Safety Report 8819017 (Version 1)
Quarter: 2012Q4

REPORT INFORMATION
  Report Type: 
  Country: CZ (occurrence: CZ)
  Receive Date: 20121001
  Receipt Date: 20121001
  Transmission Date: 20130627
  Serious: Yes (Other)
  Sender: FDA-Public Use
  Company Number: CZ-NOVOPROD-360010

PATIENT
  Age: 65 Year
  Sex: Female

DRUGS (5)
  1. ACTRAPID HM PENFILL [Suspect]
     Indication: PRODUCT USED FOR UNKNOWN INDICATION
     Dosage: UNK
     Route: 042
     Dates: start: 20120908, end: 20120908
  2. GLUCOSE [Suspect]
     Dosage: 10 IU, qd
     Route: 042
     Dates: start: 20120908, end: 20120908
  3. DITHIADEN [Concomitant]
     Dosage: UNK
     Route: 048
     Dates: start: 20120906, end: 20120906
  4. ISOCHOL [Concomitant]
     Dosage: UNK
     Dates: start: 20120908, end: 20120908
  5. IBALGIN                            /00109201/ [Concomitant]
     Dosage: UNK
     Dates: start: 20120913

REACTIONS (5)
  - Product quality issue [Unknown]
  - Chills [Unknown]
  - Body temperature increased [Unknown]
  - Vomiting [Unknown]
  - Chills [Unknown]
